FAERS Safety Report 7878498-6 (Version None)
Quarter: 2011Q4

REPORT INFORMATION
  Report Type: 
  Country: None (occurrence: None)
  Receive Date: 20111014
  Receipt Date: 20110801
  Transmission Date: 20120403
  Serious: No
  Sender: FDA-Public Use
  Company Number: 282438USA

PATIENT
  Sex: Female

DRUGS (4)
  1. OXYCODONE HCL [Concomitant]
  2. FENTANYL CITRATE [Suspect]
     Indication: INTERVERTEBRAL DISC DISORDER
     Dosage: 7200 MCG (1200 MCG, 6 IN 1 D), ORAL, 9600 MCG (1200 MCG, 8 IN 1 D), BUCCAL
     Route: 048
     Dates: start: 20010101
  3. FENTANYL CITRATE [Suspect]
     Indication: ARTHRALGIA
     Dosage: 7200 MCG (1200 MCG, 6 IN 1 D), ORAL, 9600 MCG (1200 MCG, 8 IN 1 D), BUCCAL
     Route: 048
     Dates: start: 20010101
  4. FENTANYL CITRATE [Suspect]
     Indication: NEUROPATHY PERIPHERAL
     Dosage: 7200 MCG (1200 MCG, 6 IN 1 D), ORAL, 9600 MCG (1200 MCG, 8 IN 1 D), BUCCAL
     Route: 048
     Dates: start: 20010101

REACTIONS (6)
  - ORAL CAVITY FISTULA [None]
  - OFF LABEL USE [None]
  - TOOTH DISORDER [None]
  - ABORTION INDUCED [None]
  - TOOTH LOSS [None]
  - ORAL INFECTION [None]
